FAERS Safety Report 16343411 (Version 1)
Quarter: 2019Q2

REPORT INFORMATION
  Report Type: Spontaneous
  Country: US (occurrence: US)
  Receive Date: 20190522
  Receipt Date: 20190522
  Transmission Date: 20190711
  Serious: Yes (Other)
  Sender: FDA-Public Use
  Company Number: US-OTSUKA-2019_020133

PATIENT
  Sex: Female

DRUGS (2)
  1. ABILIFY [Suspect]
     Active Substance: ARIPIPRAZOLE
     Indication: PRODUCT USED FOR UNKNOWN INDICATION
     Dosage: UNK
     Route: 048
  2. ABILIFY MAINTENA [Suspect]
     Active Substance: ARIPIPRAZOLE
     Indication: BIPOLAR DISORDER
     Dosage: 400 MG IN THE DELTOID ONCE MONTHLY
     Route: 030

REACTIONS (6)
  - Therapy cessation [Unknown]
  - Spinal cord injury [Unknown]
  - Oedema peripheral [Not Recovered/Not Resolved]
  - Insurance issue [Unknown]
  - Blood cholesterol increased [Unknown]
  - Paraesthesia [Not Recovered/Not Resolved]
